FAERS Safety Report 7636917-4 (Version None)
Quarter: 2011Q3

REPORT INFORMATION
  Report Type: 
  Country: None (occurrence: None)
  Receive Date: 20110726
  Receipt Date: 20110714
  Transmission Date: 20111222
  Serious: Yes (Hospitalization, Other)
  Sender: FDA-Public Use
  Company Number: US-ASTRAZENECA-2011SE42160

PATIENT
  Age: 56 Year
  Sex: Female

DRUGS (8)
  1. SEROQUEL XR [Suspect]
     Indication: SLEEP DISORDER
     Dosage: 50 MG BID AND 300 MG AT NIGHT
     Route: 048
     Dates: start: 20060101
  2. EFFEXOR [Concomitant]
     Indication: ANXIETY
  3. SEROQUEL XR [Suspect]
     Indication: DEPRESSION
     Dosage: 50 MG BID AND 300 MG AT NIGHT
     Route: 048
     Dates: start: 20060101
  4. SEROQUEL XR [Suspect]
     Indication: ANXIETY
     Dosage: 50 MG BID AND 300 MG AT NIGHT
     Route: 048
     Dates: start: 20060101
  5. EFFEXOR [Concomitant]
     Indication: DEPRESSION
  6. SPIRIVA [Concomitant]
  7. ADVAIR DISKUS 100/50 [Concomitant]
  8. PROAIR HFA [Concomitant]

REACTIONS (4)
  - HISTOPLASMOSIS [None]
  - DYSPNOEA [None]
  - BRONCHOSPASM [None]
  - LUNG LOBECTOMY [None]
